FAERS Safety Report 8182001-3 (Version None)
Quarter: 2012Q1

REPORT INFORMATION
  Report Type: 
  Country: None (occurrence: None)
  Receive Date: 20120302
  Receipt Date: 20120222
  Transmission Date: 20120608
  Serious: Yes (Hospitalization)
  Sender: FDA-Public Use
  Company Number: US-ROCHE-1042371

PATIENT
  Sex: Female
  Weight: 87.168 kg

DRUGS (5)
  1. OMALIZUMAB [Suspect]
     Indication: ASTHMA
     Route: 058
     Dates: start: 20111228
  2. SYNTHROID [Concomitant]
  3. DIOVAN [Concomitant]
  4. XOPENEX [Concomitant]
  5. DUONEB [Concomitant]

REACTIONS (4)
  - PYREXIA [None]
  - CONFUSIONAL STATE [None]
  - CONVULSION [None]
  - LYMPHADENOPATHY [None]
